FAERS Safety Report 9351429 (Version 1)
Quarter: 2013Q2

REPORT INFORMATION
  Report Type: Other
  Country: DE (occurrence: DE)
  Receive Date: 20130617
  Receipt Date: 20130617
  Transmission Date: 20140414
  Serious: Yes (Other)
  Sender: FDA-Public Use
  Company Number: DE-NICOBRDEVP-2013-10243

PATIENT
  Age: 37 Year
  Sex: Female
  Weight: 68 kg

DRUGS (2)
  1. CIPROFLOXACIN HYDROCHLORIDE (UNKNOWN) [Suspect]
     Indication: COLITIS
     Dosage: 250 MG, BID
     Route: 048
     Dates: start: 20130305, end: 20130316
  2. METRONIDAZOL                       /00012501/ [Concomitant]
     Indication: COLITIS
     Dosage: 500 MG, BID
     Route: 065
     Dates: start: 20130305, end: 20130316

REACTIONS (3)
  - Crying [Recovered/Resolved]
  - Depression [Recovered/Resolved]
  - Suicidal ideation [Recovered/Resolved]
